FAERS Safety Report 8302075-6 (Version None)
Quarter: 2012Q2

REPORT INFORMATION
  Report Type: 
  Country: None (occurrence: None)
  Receive Date: 20120420
  Receipt Date: 20120411
  Transmission Date: 20120825
  Serious: Yes (Hospitalization)
  Sender: FDA-Public Use
  Company Number: JP-MERCK-1204USA02303

PATIENT
  Age: 87 Year
  Sex: Female

DRUGS (4)
  1. REMODELLIN [Concomitant]
     Dosage: DAILY DOSAGE UNKNOWN
     Route: 048
  2. OLMESARTAN MEDOXOMIL [Concomitant]
     Dosage: DAILY DOSAGE UNKNOWN
     Route: 048
  3. AMLODIPINE [Concomitant]
     Dosage: DAILY DOSAGE UNKNOWN
     Route: 048
  4. COZAAR [Suspect]
     Route: 048
     Dates: start: 20090801

REACTIONS (3)
  - CARDIAC FAILURE CONGESTIVE [None]
  - BRADYCARDIA [None]
  - HYPERKALAEMIA [None]
